FAERS Safety Report 15393351 (Version 2)
Quarter: 2018Q4

REPORT INFORMATION
  Report Type: Spontaneous
  Country: GB (occurrence: GB)
  Receive Date: 20180917
  Receipt Date: 20181122
  Transmission Date: 20190204
  Serious: Yes (Life-Threatening, Hospitalization, Other)
  Sender: FDA-Public Use
  Company Number: GB-009507513-1808GBR013454

PATIENT
  Age: 78 Year
  Sex: Male

DRUGS (2)
  1. PEMBROLIZUMAB. [Suspect]
     Active Substance: PEMBROLIZUMAB
     Indication: METASTATIC MALIGNANT MELANOMA
     Dosage: 150 MG, 21 DAYS (2 MG/KG)
     Route: 042
     Dates: start: 20171030, end: 20171120
  2. PEMBROLIZUMAB. [Suspect]
     Active Substance: PEMBROLIZUMAB
     Dosage: 150 MG, 21 DAYS (2 MG/KTG)
     Route: 042
     Dates: start: 20171030, end: 20171120

REACTIONS (5)
  - Autoimmune haemolytic anaemia [Recovered/Resolved]
  - Myasthenia gravis [Recovering/Resolving]
  - Encephalitis [Recovered/Resolved]
  - Transaminases increased [Recovering/Resolving]
  - Autoimmune myocarditis [Recovering/Resolving]

NARRATIVE: CASE EVENT DATE: 20171126
